FAERS Safety Report 15856885 (Version 1)
Quarter: 2019Q1

REPORT INFORMATION
  Report Type: Spontaneous
  Country: US (occurrence: US)
  Receive Date: 20190122
  Receipt Date: 20190122
  Transmission Date: 20190417
  Serious: Yes (Hospitalization)
  Sender: FDA-Public Use
  Company Number: None

PATIENT
  Age: 45 Year
  Sex: Female

DRUGS (11)
  1. ESCITALOPRAM 20MG TAB [Concomitant]
  2. IBUPROFEN 800MG TAB [Concomitant]
  3. PANTOPRAZOLE 40MG TAB [Concomitant]
  4. OMEPRAZOLE 20MG CAP [Concomitant]
  5. CYCLOBENZAPRINE 10MG TAB [Concomitant]
  6. DULOXETINE 30MG CAP [Concomitant]
  7. SIMPONI [Suspect]
     Active Substance: GOLIMUMAB
     Indication: RHEUMATOID ARTHRITIS
     Dosage: ?          OTHER FREQUENCY:ONCE A MONTH;?
     Route: 058
  8. ATENOLOL 25MG TAB [Concomitant]
     Active Substance: ATENOLOL
  9. METOPROLOL TARTRATE 25MG TAB [Concomitant]
  10. SULFASALAZINE 500MG TAB [Concomitant]
  11. GABAPENTIN 600 MG TAB [Concomitant]

REACTIONS (2)
  - Dizziness [None]
  - Rash generalised [None]

NARRATIVE: CASE EVENT DATE: 20190119
